FAERS Safety Report 11437163 (Version 2)
Quarter: 2015Q3

REPORT INFORMATION
  Report Type: Spontaneous
  Country: US (occurrence: US)
  Receive Date: 20150831
  Receipt Date: 20150921
  Transmission Date: 20151125
  Serious: No
  Sender: FDA-Public Use
  Company Number: US-PFIZER INC-2015286535

PATIENT
  Age: 52 Year
  Sex: Female

DRUGS (2)
  1. PREMARIN [Suspect]
     Active Substance: ESTROGENS, CONJUGATED
     Indication: VULVOVAGINAL DRYNESS
     Dosage: UNK, (1 GRAM AT BEDTIME FOR 14 DAYS THEN 2-3 TIMES WEEKLY)
     Dates: start: 201505
  2. PREMARIN [Suspect]
     Active Substance: ESTROGENS, CONJUGATED
     Indication: DYSPAREUNIA

REACTIONS (2)
  - Product quality issue [Not Recovered/Not Resolved]
  - Application site pain [Not Recovered/Not Resolved]

NARRATIVE: CASE EVENT DATE: 201505
